FAERS Safety Report 24386924 (Version 5)
Quarter: 2024Q4

REPORT INFORMATION
  Report Type: Report from Study
  Country: DE (occurrence: DE)
  Receive Date: 20241002
  Receipt Date: 20241209
  Transmission Date: 20250115
  Serious: Yes (Hospitalization, Other)
  Sender: INSMED
  Company Number: DE-INSMED, INC.-2024-03805-DE

PATIENT
  Age: 76 Year
  Sex: Female

DRUGS (2)
  1. ARIKAYCE [Suspect]
     Active Substance: AMIKACIN
     Indication: Mycobacterium abscessus infection
     Dosage: 590 MILLIGRAM, QD
     Route: 055
     Dates: start: 20240617, end: 20241010
  2. ARIKAYCE [Suspect]
     Active Substance: AMIKACIN
     Dosage: 590 MILLIGRAM, QD
     Route: 055
     Dates: start: 20241016, end: 20241117

REACTIONS (6)
  - Renal impairment [Not Recovered/Not Resolved]
  - Hospitalisation [Unknown]
  - Hospitalisation [Unknown]
  - Visual impairment [Not Recovered/Not Resolved]
  - Off label use [Unknown]
  - Therapy interrupted [Unknown]

NARRATIVE: CASE EVENT DATE: 20240101
